FAERS Safety Report 24063403 (Version 1)
Quarter: 2024Q3

REPORT INFORMATION
  Report Type: Spontaneous
  Country: US (occurrence: US)
  Receive Date: 20240709
  Receipt Date: 20240709
  Transmission Date: 20241017
  Serious: Yes (Other)
  Sender: BIOCON
  Company Number: US-BIOCON-BCN-2024-000122

PATIENT
  Age: 73 Year
  Sex: Male

DRUGS (1)
  1. ATORVASTATIN [Suspect]
     Active Substance: ATORVASTATIN
     Indication: Hyperlipidaemia
     Dosage: APPROXIMATELY ONE YEAR AGO
     Route: 048

REACTIONS (1)
  - Eosinophilic cellulitis [Recovering/Resolving]
